FAERS Safety Report 5164267-7 (Version None)
Quarter: 2006Q4

REPORT INFORMATION
  Report Type: 
  Country: None (occurrence: None)
  Receive Date: 20060918
  Receipt Date: 20051021
  Transmission Date: 20070319
  Serious: Yes (Other)
  Sender: FDA-Public Use
  Company Number: US-JNJFOC-20051005289

PATIENT
  Age: 48 Year
  Sex: Female
  Weight: 76.2043 kg

DRUGS (8)
  1. TOPAMAX [Suspect]
     Indication: NEUROPATHY PERIPHERAL
     Dosage: 50 + 75 MG, 2 IN 1 DAY, ORAL - SEE IMAGE
     Route: 048
     Dates: start: 20000101, end: 20050401
  2. TOPAMAX [Suspect]
     Indication: NEUROPATHY PERIPHERAL
     Dosage: 50 + 75 MG, 2 IN 1 DAY, ORAL - SEE IMAGE
     Route: 048
     Dates: start: 20050401
  3. AVALIDE (KARVEA HCT) [Concomitant]
  4. PREVACID (LANSOMPRAZOLE) [Concomitant]
  5. LASIX [Concomitant]
  6. K-DUR 10 [Concomitant]
  7. HORMONE THERAPY (ANDROGENS AND FEMALE SEX HORMONES IN COMB) CREAM [Concomitant]
  8. HYPOTHYROIDISM MEDICATION (LEVOTHYROXINE) [Concomitant]

REACTIONS (12)
  - ABDOMINAL DISTENSION [None]
  - ALOPECIA [None]
  - CONVULSION [None]
  - EYE PAIN [None]
  - INSOMNIA [None]
  - MIGRAINE [None]
  - MOOD ALTERED [None]
  - OESOPHAGEAL DISORDER [None]
  - PAIN [None]
  - SKIN BURNING SENSATION [None]
  - SUICIDAL IDEATION [None]
  - TENDON DISORDER [None]
